FAERS Safety Report 4889788-3 (Version None)
Quarter: 2006Q1

REPORT INFORMATION
  Report Type: 
  Country: None (occurrence: None)
  Receive Date: 20060124
  Receipt Date: 20050606
  Transmission Date: 20060701
  Serious: Yes (Death, Hospitalization)
  Sender: FDA-Public Use
  Company Number: US-MERCK-0506USA01011

PATIENT
  Age: 65 Year
  Sex: Male
  Weight: 91 kg

DRUGS (5)
  1. VIOXX [Suspect]
     Indication: BACK PAIN
     Route: 048
     Dates: start: 19990803, end: 20020120
  2. VIOXX [Suspect]
     Route: 048
     Dates: start: 19990803, end: 20020120
  3. VIOXX [Suspect]
     Indication: HEADACHE
     Route: 048
     Dates: start: 19990803, end: 20020120
  4. VIOXX [Suspect]
     Route: 048
     Dates: start: 19990803, end: 20020120
  5. ASPIRIN [Concomitant]
     Route: 065

REACTIONS (9)
  - ATRIAL FIBRILLATION [None]
  - BACK DISORDER [None]
  - CARDIO-RESPIRATORY ARREST [None]
  - DYSPNOEA [None]
  - HYPERTENSION [None]
  - MYOCARDIAL INFARCTION [None]
  - PROSTATIC DISORDER [None]
  - PULMONARY EMBOLISM [None]
  - SKIN CANCER [None]
